FAERS Safety Report 17802021 (Version 1)
Quarter: 2020Q2

REPORT INFORMATION
  Report Type: Spontaneous
  Country: US (occurrence: US)
  Receive Date: 20200519
  Receipt Date: 20200519
  Transmission Date: 20200714
  Serious: No
  Sender: FDA-Public Use
  Company Number: US-DRREDDYS-USA/USA/20/0122885

PATIENT
  Age: 54 Year
  Sex: Female
  Weight: 77.27 kg

DRUGS (1)
  1. NICOTINE. [Suspect]
     Active Substance: NICOTINE
     Indication: PRODUCT USED FOR UNKNOWN INDICATION
     Route: 062
     Dates: start: 202005, end: 20200511

REACTIONS (3)
  - Product use issue [Unknown]
  - Underdose [Unknown]
  - Product adhesion issue [Unknown]
